FAERS Safety Report 23871211 (Version 1)
Quarter: 2024Q2

REPORT INFORMATION
  Report Type: Report from Study
  Country: US (occurrence: US)
  Receive Date: 20240519
  Receipt Date: 20240519
  Transmission Date: 20240716
  Serious: Yes (Hospitalization, Other)
  Sender: FDA-Public Use
  Company Number: US-SA-SAC20230104000907

PATIENT
  Age: 52 Year
  Sex: Female

DRUGS (2)
  1. BELUMOSUDIL MESYLATE [Suspect]
     Active Substance: BELUMOSUDIL MESYLATE
     Indication: Acute myeloid leukaemia
     Dosage: 200 MG, QD
     Route: 048
     Dates: start: 20210909
  2. BELUMOSUDIL MESYLATE [Suspect]
     Active Substance: BELUMOSUDIL MESYLATE
     Indication: Chronic graft versus host disease

REACTIONS (10)
  - Nephrolithiasis [Unknown]
  - Dizziness [Unknown]
  - Somnolence [Unknown]
  - Pain [Unknown]
  - Loss of personal independence in daily activities [Unknown]
  - General physical health deterioration [Unknown]
  - Gastroenteritis viral [Unknown]
  - Fatigue [Unknown]
  - Viral infection [Unknown]
  - Product use in unapproved indication [Unknown]

NARRATIVE: CASE EVENT DATE: 20210909
